FAERS Safety Report 16344864 (Version 4)
Quarter: 2019Q2

REPORT INFORMATION
  Report Type: Spontaneous
  Country: CN (occurrence: CN)
  Receive Date: 20190522
  Receipt Date: 20190611
  Transmission Date: 20190711
  Serious: Yes (Hospitalization)
  Sender: FDA-Public Use
  Company Number: CN-ASTRAZENECA-2019SE72525

PATIENT
  Sex: Female
  Weight: 65 kg

DRUGS (1)
  1. IRESSA [Suspect]
     Active Substance: GEFITINIB
     Indication: LUNG NEOPLASM MALIGNANT
     Route: 048
     Dates: start: 20190227, end: 20190501

REACTIONS (7)
  - Fatigue [Unknown]
  - Lung infection [Recovering/Resolving]
  - Insomnia [Recovering/Resolving]
  - Suffocation feeling [Recovering/Resolving]
  - Interstitial lung disease [Unknown]
  - Obstruction gastric [Unknown]
  - Abdominal discomfort [Unknown]
